FAERS Safety Report 9158320 (Version 1)
Quarter: 2013Q1

REPORT INFORMATION
  Report Type: Spontaneous
  Country: IT (occurrence: None)
  Receive Date: 20130211
  Receipt Date: 20130211
  Transmission Date: 20140127
  Serious: Yes (Hospitalization)
  Sender: FDA-Public Use
  Company Number: INT_00201_2013

PATIENT
  Age: 80 Year
  Sex: Female

DRUGS (9)
  1. CEFTRIAXONE [Suspect]
     Indication: BRONCHOPNEUMONIA
     Route: 030
     Dates: start: 20121126, end: 20121201
  2. LEVOFLOXACIN [Suspect]
     Indication: BRONCHOPNEUMONIA
     Route: 048
     Dates: start: 20121121, end: 20121125
  3. LEVOFLOXACIN [Suspect]
     Indication: BRONCHOPNEUMONIA
     Route: 048
     Dates: start: 20121121, end: 20121125
  4. AUGMENTIN [Concomitant]
  5. AMLODIPINE [Concomitant]
  6. FLECAINIDE [Concomitant]
  7. IRBESARTAN [Concomitant]
  8. TICLOPIDINE [Concomitant]
  9. SAXAGLIPTIN [Concomitant]

REACTIONS (1)
  - Renal failure chronic [None]
